FAERS Safety Report 14835374 (Version 1)
Quarter: 2018Q2

REPORT INFORMATION
  Report Type: Spontaneous
  Country: US (occurrence: US)
  Receive Date: 20180502
  Receipt Date: 20180502
  Transmission Date: 20180711
  Serious: No
  Sender: FDA-Public Use
  Company Number: US-BIOGEN-2018BI00562061

PATIENT
  Age: 51 Year
  Sex: Female

DRUGS (2)
  1. TECFIDERA [Suspect]
     Active Substance: DIMETHYL FUMARATE
     Indication: MULTIPLE SCLEROSIS
     Route: 048
     Dates: start: 20160330, end: 20160502
  2. TECFIDERA [Suspect]
     Active Substance: DIMETHYL FUMARATE
     Route: 048
     Dates: start: 20170410

REACTIONS (4)
  - Somnolence [Recovered/Resolved]
  - Paraesthesia [Not Recovered/Not Resolved]
  - Upper limb fracture [Recovered/Resolved with Sequelae]
  - Road traffic accident [Recovered/Resolved]

NARRATIVE: CASE EVENT DATE: 20180325
